FAERS Safety Report 25763947 (Version 1)
Quarter: 2025Q3

REPORT INFORMATION
  Report Type: Spontaneous
  Country: US (occurrence: US)
  Receive Date: 20250905
  Receipt Date: 20250905
  Transmission Date: 20251021
  Serious: No
  Sender: DOMPE FARMACEUTICI
  Company Number: US-FARMAPROD-202411-4033

PATIENT
  Sex: Female

DRUGS (9)
  1. OXERVATE [Suspect]
     Active Substance: CENEGERMIN-BKBJ
     Indication: Neurotrophic keratopathy
     Route: 047
     Dates: start: 20241021
  2. PROTONIX [Concomitant]
     Active Substance: PANTOPRAZOLE SODIUM
  3. CALCITRIOL [Concomitant]
     Active Substance: CALCITRIOL
  4. BUMETANIDE [Concomitant]
     Active Substance: BUMETANIDE
  5. NEURONTIN [Concomitant]
     Active Substance: GABAPENTIN
  6. MYFORTIC [Concomitant]
     Active Substance: MYCOPHENOLATE SODIUM
  7. HYDROXYZINE HYDROCHLORIDE [Concomitant]
     Active Substance: HYDROXYZINE HYDROCHLORIDE
  8. PREDNISOLONE [Concomitant]
     Active Substance: PREDNISOLONE
  9. OFLOXACIN [Concomitant]
     Active Substance: OFLOXACIN

REACTIONS (3)
  - Ocular hyperaemia [Not Recovered/Not Resolved]
  - Eye pain [Not Recovered/Not Resolved]
  - Product dose omission issue [Not Recovered/Not Resolved]
